FAERS Safety Report 14016707 (Version 1)
Quarter: 2017Q3

REPORT INFORMATION
  Report Type: Spontaneous
  Country: BE (occurrence: BE)
  Receive Date: 20170927
  Receipt Date: 20170927
  Transmission Date: 20171128
  Serious: Yes (Hospitalization, Other)
  Sender: FDA-Public Use
  Company Number: BE-ASTRAZENECA-2017SE97340

PATIENT
  Sex: Female

DRUGS (1)
  1. TAGRISSO [Suspect]
     Active Substance: OSIMERTINIB
     Route: 048

REACTIONS (7)
  - Electrocardiogram Q wave abnormal [Unknown]
  - Atrial fibrillation [Unknown]
  - Chest pain [Unknown]
  - Ventricular hypokinesia [Unknown]
  - Hypotension [Unknown]
  - Troponin increased [Unknown]
  - Cardiomyopathy [Unknown]
